FAERS Safety Report 15057092 (Version 1)
Quarter: 2018Q2

REPORT INFORMATION
  Report Type: Spontaneous
  Country: US (occurrence: US)
  Receive Date: 20180604
  Receipt Date: 20180604
  Transmission Date: 20180711
  Serious: Yes (Other)
  Sender: FDA-Public Use
  Company Number: None

PATIENT
  Age: 24 Year
  Sex: Female
  Weight: 72 kg

DRUGS (5)
  1. TOPIRAMATE. [Suspect]
     Active Substance: TOPIRAMATE
     Indication: MIGRAINE PROPHYLAXIS
     Dosage: ?          QUANTITY:1 DF DOSAGE FORM;?
     Route: 048
     Dates: start: 20180419, end: 20180601
  2. DROSPIRENONE / ETHINYL ESTRADIOL [Concomitant]
  3. INDOMETHACIN. [Concomitant]
     Active Substance: INDOMETHACIN
  4. SUMATRIPTAN. [Concomitant]
     Active Substance: SUMATRIPTAN
  5. OMEPRAZOLE ER [Concomitant]

REACTIONS (3)
  - Visual perseveration [None]
  - Diplopia [None]
  - Product substitution issue [None]

NARRATIVE: CASE EVENT DATE: 20180420
